FAERS Safety Report 7665757-5 (Version None)
Quarter: 2011Q3

REPORT INFORMATION
  Report Type: 
  Country: None (occurrence: None)
  Receive Date: 20110806
  Receipt Date: 20110725
  Transmission Date: 20111222
  Serious: No
  Sender: FDA-Public Use
  Company Number: US-ABBOTT-11P-163-0841516-00

PATIENT
  Sex: Female
  Weight: 76.726 kg

DRUGS (4)
  1. NIASPAN [Suspect]
     Indication: BLOOD TRIGLYCERIDES INCREASED
     Dates: start: 20110501, end: 20110601
  2. LISINOPRIL [Concomitant]
     Indication: HYPERTENSION
  3. HYDROCHLOROTHIAZIDE [Concomitant]
     Indication: HYPERTENSION
  4. LEVOXYL [Concomitant]
     Indication: HYPOTHYROIDISM

REACTIONS (3)
  - FLUSHING [None]
  - INSOMNIA [None]
  - HEADACHE [None]
